FAERS Safety Report 20475940 (Version 1)
Quarter: 2022Q1

REPORT INFORMATION
  Report Type: Spontaneous
  Country: US (occurrence: None)
  Receive Date: 20220215
  Receipt Date: 20220215
  Transmission Date: 20220423
  Serious: Yes (Life-Threatening, Hospitalization, Disabling)
  Sender: FDA-Public Use
  Company Number: None

PATIENT
  Age: 65 Year
  Sex: Female
  Weight: 60.75 kg

DRUGS (6)
  1. UMBRALISIB [Suspect]
     Active Substance: UMBRALISIB
     Indication: Chronic lymphocytic leukaemia
     Dates: start: 20210201, end: 20220204
  2. synthroid (for dead thyroid) [Concomitant]
  3. vitamins/minerals [Concomitant]
  4. MULTI [Concomitant]
  5. FISH OIL [Concomitant]
  6. Ca-Zn-Mag [Concomitant]

REACTIONS (5)
  - Colitis [None]
  - Decreased appetite [None]
  - Somnolence [None]
  - Dehydration [None]
  - Megacolon [None]

NARRATIVE: CASE EVENT DATE: 20220129
